FAERS Safety Report 5524387-1 (Version None)
Quarter: 2007Q4

REPORT INFORMATION
  Report Type: 
  Country: None (occurrence: None)
  Receive Date: 20071121
  Receipt Date: 20071112
  Transmission Date: 20080405
  Serious: Yes (Other)
  Sender: FDA-Public Use
  Company Number: US-PFIZER INC-2007096641

PATIENT

DRUGS (1)
  1. CHANTIX [Suspect]

REACTIONS (2)
  - GLOBAL AMNESIA [None]
  - UNEVALUABLE EVENT [None]
